FAERS Safety Report 15643146 (Version 1)
Quarter: 2018Q4

REPORT INFORMATION
  Report Type: Spontaneous
  Country: US (occurrence: US)
  Receive Date: 20181114
  Receipt Date: 20181114
  Transmission Date: 20190205
  Serious: No
  Sender: FDA-Public Use
  Company Number: None

PATIENT
  Sex: Female

DRUGS (1)
  1. ENTYVIO [Suspect]
     Active Substance: VEDOLIZUMAB
     Indication: COLITIS ULCERATIVE
     Dosage: ?          OTHER FREQUENCY:EVERY 8 WEEKS;?
     Route: 042
     Dates: start: 20140813

REACTIONS (11)
  - Irritability [None]
  - Asthenia [None]
  - Visual impairment [None]
  - Clumsiness [None]
  - Memory impairment [None]
  - Anger [None]
  - Progressive multifocal leukoencephalopathy [None]
  - Confusional state [None]
  - Thinking abnormal [None]
  - Disorientation [None]
  - Personality change [None]
